FAERS Safety Report 7912203-X (Version None)
Quarter: 2011Q4

REPORT INFORMATION
  Report Type: 
  Country: None (occurrence: None)
  Receive Date: 20111114
  Receipt Date: 20110809
  Transmission Date: 20120403
  Serious: Yes (Hospitalization)
  Sender: FDA-Public Use
  Company Number: US-BAYER-2011-109494

PATIENT
  Age: 47 Year
  Sex: Female

DRUGS (18)
  1. LOVAZA [Concomitant]
  2. COMPAZINE [Concomitant]
  3. METFORMIN [Concomitant]
  4. VENLAFAXINE [Concomitant]
  5. INTERFERON BETA-1B [Suspect]
     Route: 058
  6. MELOXICAM [Concomitant]
  7. TEMAZEPAM [Concomitant]
  8. TEMAZEPAM [Concomitant]
  9. POTASSIUM CHLORIDE [Concomitant]
  10. CLOZAPINE [Concomitant]
  11. RANITIDINE [Concomitant]
  12. ATENOLOL [Concomitant]
  13. SIMVASTATIN [Concomitant]
  14. SEROQUEL [Concomitant]
  15. TRAZODONE HCL [Concomitant]
  16. SENNA [Concomitant]
  17. ZANAFLEX [Concomitant]
  18. ONDANSETRON [Concomitant]

REACTIONS (2)
  - BLISTER [None]
  - PAIN [None]
